FAERS Safety Report 5649018-1 (Version None)
Quarter: 2008Q1

REPORT INFORMATION
  Report Type: 
  Country: None (occurrence: None)
  Receive Date: 20080304
  Receipt Date: 20080225
  Transmission Date: 20080703
  Serious: Yes (Other)
  Sender: FDA-Public Use
  Company Number: US-JNJFOC-20080206115

PATIENT
  Age: 21 Year
  Sex: Male
  Weight: 113.4 kg

DRUGS (6)
  1. INVEGA [Suspect]
     Route: 048
  2. INVEGA [Suspect]
     Indication: SCHIZOPHRENIA
     Route: 048
  3. DEPAKOTE [Concomitant]
     Indication: DRUG THERAPY
     Route: 048
  4. KLONOPIN [Concomitant]
     Indication: ANXIETY
     Route: 048
  5. ZOLOFT [Concomitant]
     Indication: DEPRESSION
     Route: 048
  6. RISPERDAL [Concomitant]
     Indication: SCHIZOPHRENIA
     Route: 048

REACTIONS (3)
  - BLOOD CHOLESTEROL ABNORMAL [None]
  - LEFT VENTRICULAR HYPERTROPHY [None]
  - OEDEMA PERIPHERAL [None]
